FAERS Safety Report 6623818-3 (Version None)
Quarter: 2010Q1

REPORT INFORMATION
  Report Type: 
  Country: None (occurrence: None)
  Receive Date: 20100310
  Receipt Date: 20100225
  Transmission Date: 20100710
  Serious: Yes (Other)
  Sender: FDA-Public Use
  Company Number: PHEH2009US14928

PATIENT
  Sex: Female
  Weight: 67.3 kg

DRUGS (2)
  1. RECLAST [Suspect]
     Indication: OSTEOPOROSIS
     Dosage: 5 MG ONCE
     Route: 042
     Dates: start: 20090922
  2. ARIMIDEX [Concomitant]
     Indication: BREAST CANCER
     Dosage: 1 MG, QD
     Route: 048

REACTIONS (19)
  - BLEPHARITIS [None]
  - BLINDNESS UNILATERAL [None]
  - CELLULITIS ORBITAL [None]
  - DIARRHOEA [None]
  - ENDOPHTHALMITIS [None]
  - EYE PAIN [None]
  - EYE SWELLING [None]
  - EYELID OEDEMA [None]
  - EYELID PTOSIS [None]
  - HERPES SIMPLEX OPHTHALMIC [None]
  - INSOMNIA [None]
  - INTRAOCULAR PRESSURE INCREASED [None]
  - LACRIMATION INCREASED [None]
  - NARROW ANTERIOR CHAMBER ANGLE [None]
  - NAUSEA [None]
  - OCULAR HYPERAEMIA [None]
  - PAROPHTHALMIA [None]
  - VISION BLURRED [None]
  - VOMITING [None]
